FAERS Safety Report 7801875-6 (Version None)
Quarter: 2011Q4

REPORT INFORMATION
  Report Type: 
  Country: None (occurrence: None)
  Receive Date: 20111007
  Receipt Date: 20111007
  Transmission Date: 20120403
  Serious: Yes (Other)
  Sender: FDA-Public Use
  Company Number: DE-PFIZER INC-2011160810

PATIENT
  Age: 54 Year
  Sex: Female
  Weight: 51 kg

DRUGS (1)
  1. CLINDAMYCIN HCL [Suspect]
     Indication: INFLAMMATION
     Dosage: UNK
     Dates: start: 20070101

REACTIONS (2)
  - TRIGGER FINGER [None]
  - PSEUDOMEMBRANOUS COLITIS [None]
